FAERS Safety Report 12938255 (Version 1)
Quarter: 2016Q4

REPORT INFORMATION
  Report Type: Spontaneous
  Country: US (occurrence: US)
  Receive Date: 20161114
  Receipt Date: 20161114
  Transmission Date: 20170207
  Serious: Yes (Other)
  Sender: FDA-Public Use
  Company Number: None

PATIENT
  Age: 56 Year
  Sex: Female
  Weight: 61.29 kg

DRUGS (23)
  1. ENSURE [Concomitant]
     Active Substance: AMINO ACIDS\DEXTROSE\ELECTROLYTES NOS\SOYBEAN OIL\VITAMINS
  2. PERCOCET [Concomitant]
     Active Substance: ACETAMINOPHEN\OXYCODONE HYDROCHLORIDE
  3. PROBIOTICS [Concomitant]
     Active Substance: PROBIOTICS NOS
  4. ENTOCORT [Concomitant]
     Active Substance: BUDESONIDE
  5. ZINC [Concomitant]
     Active Substance: ZINC\ZINC CHLORIDE
  6. ALPRAZOLAM. [Concomitant]
     Active Substance: ALPRAZOLAM
  7. DEPAKOTE [Concomitant]
     Active Substance: DIVALPROEX SODIUM
  8. ELIQUIS [Concomitant]
     Active Substance: APIXABAN
  9. ALLEGRA [Concomitant]
     Active Substance: FEXOFENADINE HYDROCHLORIDE
  10. LATUDA [Suspect]
     Active Substance: LURASIDONE HYDROCHLORIDE
     Indication: BIPOLAR DISORDER
     Dosage: 1 PILL PER DAY 1 AT BEDTIME WITH FOOD ORALLY
     Route: 048
     Dates: start: 20161110, end: 20161110
  11. LOMOTIL [Concomitant]
     Active Substance: ATROPINE SULFATE\DIPHENOXYLATE HYDROCHLORIDE
  12. CITRACAL [Concomitant]
     Active Substance: CALCIUM CITRATE
  13. XANAX [Concomitant]
     Active Substance: ALPRAZOLAM
  14. BIOTIN [Concomitant]
     Active Substance: BIOTIN
  15. BENTYL [Concomitant]
     Active Substance: DICYCLOMINE HYDROCHLORIDE
  16. VITAMIN A [Concomitant]
     Active Substance: VITAMIN A
  17. FLUTICASONE PROPIONATE. [Concomitant]
     Active Substance: FLUTICASONE PROPIONATE
  18. FOLIC ACID. [Concomitant]
     Active Substance: FOLIC ACID
  19. CALCIUM [Concomitant]
     Active Substance: CALCIUM
  20. TYLENOL [Concomitant]
     Active Substance: ACETAMINOPHEN
  21. VITAMIN D2 [Concomitant]
     Active Substance: ERGOCALCIFEROL
  22. COLLAGEN [Concomitant]
     Active Substance: COLLAGEN
  23. VITAMIN C [Concomitant]
     Active Substance: ASCORBIC ACID

REACTIONS (13)
  - Vascular pain [None]
  - Asthenia [None]
  - Heart rate increased [None]
  - Fatigue [None]
  - Thirst [None]
  - Irritability [None]
  - Musculoskeletal stiffness [None]
  - Hunger [None]
  - Pain [None]
  - Insomnia [None]
  - Paralysis [None]
  - Dry mouth [None]
  - Diarrhoea [None]

NARRATIVE: CASE EVENT DATE: 20161110
